FAERS Safety Report 9699128 (Version 2)
Quarter: 2013Q4

REPORT INFORMATION
  Report Type: Spontaneous
  Country: GB (occurrence: GB)
  Receive Date: 20131120
  Receipt Date: 20131204
  Transmission Date: 20140711
  Serious: Yes (Hospitalization, Other)
  Sender: FDA-Public Use
  Company Number: GB-ROCHE-1305106

PATIENT
  Age: 84 Year
  Sex: Male

DRUGS (4)
  1. ZELBORAF [Suspect]
     Indication: METASTATIC MALIGNANT MELANOMA
     Route: 048
     Dates: start: 20130509
  2. ZELBORAF [Suspect]
     Route: 048
  3. ZELBORAF [Suspect]
     Route: 048
     Dates: end: 20130708
  4. PREDNISONE [Concomitant]
     Indication: AUTOIMMUNE HAEMOLYTIC ANAEMIA
     Route: 065
     Dates: start: 201205

REACTIONS (1)
  - Renal failure [Recovered/Resolved]
